FAERS Safety Report 9471130 (Version 3)
Quarter: 2014Q2

REPORT INFORMATION
  Report Type: Spontaneous
  Country: US (occurrence: US)
  Receive Date: 20130822
  Receipt Date: 20140627
  Transmission Date: 20141212
  Serious: Yes (Other)
  Sender: FDA-Public Use
  Company Number: US-BAYER-2013-100654

PATIENT
  Age: 22 Year
  Sex: Female

DRUGS (1)
  1. MIRENA [Suspect]
     Dosage: 20 MCG/24HR, CONT
     Route: 015
     Dates: start: 20120402, end: 20121004

REACTIONS (6)
  - Intestinal perforation [None]
  - Mobility decreased [None]
  - Ovarian cyst [None]
  - Abdominal pain lower [None]
  - Injury [None]
  - Pain [None]
